FAERS Safety Report 20199509 (Version 1)
Quarter: 2021Q4

REPORT INFORMATION
  Report Type: Spontaneous
  Country: GB (occurrence: GB)
  Receive Date: 20211217
  Receipt Date: 20211217
  Transmission Date: 20220303
  Serious: Yes (Other)
  Sender: FDA-Public Use
  Company Number: None

PATIENT
  Age: 19 Year
  Sex: Female
  Weight: 56 kg

DRUGS (6)
  1. DOXYCYCLINE [Suspect]
     Active Substance: DOXYCYCLINE
     Indication: Ill-defined disorder
     Dosage: UNK
     Route: 048
     Dates: start: 20201118
  2. COSMOCOL [Concomitant]
     Indication: Ill-defined disorder
     Dosage: UNK, USE 1-2 SATCHETS DAILY
     Dates: start: 20211022
  3. EPIDUO [Concomitant]
     Active Substance: ADAPALENE\BENZOYL PEROXIDE
     Indication: Ill-defined disorder
     Dosage: UNK, APPLY THINLY ONCE DAILY IN THE EVENING
     Dates: start: 20211126
  4. ERYTHROMYCIN [Concomitant]
     Active Substance: ERYTHROMYCIN
     Indication: Ill-defined disorder
     Dosage: UNK UNK, BID, APPLY TWICE DAILY
     Dates: start: 20211202
  5. LANSOPRAZOLE [Concomitant]
     Active Substance: LANSOPRAZOLE
     Indication: Ill-defined disorder
     Dosage: UNK UNK, QD, TAKE ONE DAILY
     Dates: start: 20201019
  6. LYMECYCLINE [Concomitant]
     Active Substance: LYMECYCLINE
     Indication: Ill-defined disorder
     Dosage: UNK, QD, ONE TO BE TAKEN DAILY
     Dates: start: 20211202

REACTIONS (1)
  - Chest pain [Recovering/Resolving]

NARRATIVE: CASE EVENT DATE: 20211127
